FAERS Safety Report 18576020 (Version 1)
Quarter: 2020Q4

REPORT INFORMATION
  Report Type: Spontaneous
  Country: US (occurrence: US)
  Receive Date: 20201203
  Receipt Date: 20201203
  Transmission Date: 20210114
  Serious: No
  Sender: FDA-Public Use
  Company Number: NVSC2020US318987

PATIENT
  Sex: Male

DRUGS (33)
  1. LEFLUNOMIDE. [Suspect]
     Active Substance: LEFLUNOMIDE
     Indication: DACTYLITIS
  2. METHOTREXATE. [Suspect]
     Active Substance: METHOTREXATE
     Indication: DACTYLITIS
  3. REMICADE [Suspect]
     Active Substance: INFLIXIMAB
     Indication: PSORIATIC ARTHROPATHY
     Dosage: UNK, DOSES UP TO 10MG/KG/6 WKS
     Route: 065
  4. REMICADE [Suspect]
     Active Substance: INFLIXIMAB
     Indication: SERONEGATIVE ARTHRITIS
  5. REMICADE [Suspect]
     Active Substance: INFLIXIMAB
     Indication: DACTYLITIS
  6. ENBREL [Suspect]
     Active Substance: ETANERCEPT
     Indication: DACTYLITIS
  7. METHOTREXATE. [Suspect]
     Active Substance: METHOTREXATE
     Indication: PSORIATIC ARTHROPATHY
     Dosage: UNK
     Route: 065
  8. METHOTREXATE. [Suspect]
     Active Substance: METHOTREXATE
     Indication: DACTYLITIS
  9. SULFASALAZINE. [Suspect]
     Active Substance: SULFASALAZINE
     Indication: PSORIATIC ARTHROPATHY
     Dosage: UNK
     Route: 065
  10. PLAQUENIL [Suspect]
     Active Substance: HYDROXYCHLOROQUINE SULFATE
     Indication: DACTYLITIS
  11. ENBREL [Suspect]
     Active Substance: ETANERCEPT
     Indication: SERONEGATIVE ARTHRITIS
     Dosage: 50 MG, TWICE A WEEK
     Route: 065
  12. OTREXUP [Suspect]
     Active Substance: METHOTREXATE
     Indication: PSORIATIC ARTHROPATHY
     Dosage: UNK
     Route: 065
  13. TALTZ [Suspect]
     Active Substance: IXEKIZUMAB
     Indication: SERONEGATIVE ARTHRITIS
  14. COSENTYX [Suspect]
     Active Substance: SECUKINUMAB
     Indication: SERONEGATIVE ARTHRITIS
  15. COSENTYX [Suspect]
     Active Substance: SECUKINUMAB
     Indication: DACTYLITIS
  16. OTREXUP [Suspect]
     Active Substance: METHOTREXATE
     Indication: SERONEGATIVE ARTHRITIS
  17. OTREXUP [Suspect]
     Active Substance: METHOTREXATE
     Indication: DACTYLITIS
  18. COSENTYX [Suspect]
     Active Substance: SECUKINUMAB
     Indication: PSORIATIC ARTHROPATHY
     Dosage: 300 MG, QMO
     Route: 065
  19. LEFLUNOMIDE. [Suspect]
     Active Substance: LEFLUNOMIDE
     Indication: PSORIATIC ARTHROPATHY
     Dosage: UNK
     Route: 065
  20. PLAQUENIL [Suspect]
     Active Substance: HYDROXYCHLOROQUINE SULFATE
     Indication: SERONEGATIVE ARTHRITIS
  21. HUMIRA [Suspect]
     Active Substance: ADALIMUMAB
     Indication: DACTYLITIS
  22. ENBREL [Suspect]
     Active Substance: ETANERCEPT
     Indication: PSORIATIC ARTHROPATHY
     Dosage: 50 MG, QW
     Route: 065
  23. TALTZ [Suspect]
     Active Substance: IXEKIZUMAB
     Indication: DACTYLITIS
  24. METHOTREXATE. [Suspect]
     Active Substance: METHOTREXATE
     Indication: PSORIATIC ARTHROPATHY
     Dosage: UNK
     Route: 048
  25. LEFLUNOMIDE. [Suspect]
     Active Substance: LEFLUNOMIDE
     Indication: SERONEGATIVE ARTHRITIS
  26. SULFASALAZINE. [Suspect]
     Active Substance: SULFASALAZINE
     Indication: DACTYLITIS
  27. HUMIRA [Suspect]
     Active Substance: ADALIMUMAB
     Indication: SERONEGATIVE ARTHRITIS
     Dosage: 40 MG, QW
     Route: 065
  28. TALTZ [Suspect]
     Active Substance: IXEKIZUMAB
     Indication: PSORIATIC ARTHROPATHY
     Dosage: 80 MG, QMO
     Route: 065
  29. METHOTREXATE. [Suspect]
     Active Substance: METHOTREXATE
     Indication: SERONEGATIVE ARTHRITIS
  30. SULFASALAZINE. [Suspect]
     Active Substance: SULFASALAZINE
     Indication: SERONEGATIVE ARTHRITIS
  31. HUMIRA [Suspect]
     Active Substance: ADALIMUMAB
     Indication: PSORIATIC ARTHROPATHY
     Dosage: 40 MG, Q2W
     Route: 065
  32. METHOTREXATE. [Suspect]
     Active Substance: METHOTREXATE
     Indication: SERONEGATIVE ARTHRITIS
  33. PLAQUENIL [Suspect]
     Active Substance: HYDROXYCHLOROQUINE SULFATE
     Indication: PSORIATIC ARTHROPATHY
     Dosage: UNK
     Route: 065

REACTIONS (3)
  - Therapeutic product effect decreased [Unknown]
  - Fatigue [Unknown]
  - Nausea [Unknown]
